FAERS Safety Report 19855682 (Version 1)
Quarter: 2021Q3

REPORT INFORMATION
  Report Type: Spontaneous
  Country: US (occurrence: US)
  Receive Date: 20210920
  Receipt Date: 20210920
  Transmission Date: 20211014
  Serious: Yes (Other)
  Sender: FDA-Public Use
  Company Number: US-AMGEN-USASP2021140814

PATIENT
  Age: 67 Year
  Sex: Female

DRUGS (2)
  1. PREDNISONE. [Concomitant]
     Active Substance: PREDNISONE
     Dosage: 40 MILLIGRAM, QD
  2. RITUXIMAB. [Suspect]
     Active Substance: RITUXIMAB
     Indication: PAROPHTHALMIA
     Dosage: UNK
     Route: 065

REACTIONS (5)
  - Therapeutic product effect incomplete [Unknown]
  - Retinal detachment [Recovered/Resolved]
  - Cystoid macular oedema [Recovered/Resolved]
  - Off label use [Unknown]
  - Optic neuritis [Recovered/Resolved]
